FAERS Safety Report 7078490-8 (Version None)
Quarter: 2010Q4

REPORT INFORMATION
  Report Type: 
  Country: None (occurrence: None)
  Receive Date: 20101102
  Receipt Date: 20101021
  Transmission Date: 20110411
  Serious: Yes (Death)
  Sender: FDA-Public Use
  Company Number: GXKR2010US11931

PATIENT
  Age: 50 Year
  Sex: Male

DRUGS (6)
  1. OXYCODONE HCL [Interacting]
     Indication: PAIN
     Dosage: SLOWLY TITRATED UP TO 5 DF, QD
     Route: 065
  2. OXYCODONE HCL [Interacting]
     Dosage: 8 DF, ONCE/SINGLE
     Route: 065
  3. DIAZEPAM [Suspect]
     Dosage: 5 MG, TID
     Route: 065
  4. TRAZODONE (NGX) [Interacting]
     Dosage: 200 MG, (AT BEDTIME)
     Route: 065
  5. FLUOXETINE [Interacting]
     Dosage: 20 MG, (EVERYDAY BEFORE NOON)
     Route: 065
  6. FLUOXETINE [Interacting]
     Dosage: 60 MG/DAY
     Route: 065

REACTIONS (4)
  - DEPENDENCE [None]
  - DRUG ABUSE [None]
  - DRUG INTERACTION [None]
  - DRUG TOXICITY [None]
